FAERS Safety Report 8330213-8 (Version None)
Quarter: 2012Q2

REPORT INFORMATION
  Report Type: 
  Country: None (occurrence: None)
  Receive Date: 20120502
  Receipt Date: 20100219
  Transmission Date: 20120825
  Serious: No
  Sender: FDA-Public Use
  Company Number: US-TEVA-2010000970

PATIENT
  Sex: Female
  Weight: 62.652 kg

DRUGS (4)
  1. LYRICA [Concomitant]
     Indication: NEURALGIA
     Dosage: 150 MILLIGRAM;
     Route: 048
     Dates: start: 20090101
  2. COPAXONE [Concomitant]
     Indication: MULTIPLE SCLEROSIS
     Dosage: 20 MILLIGRAM;
     Route: 058
     Dates: start: 20090101
  3. NUVIGIL [Suspect]
     Indication: MULTIPLE SCLEROSIS
     Dosage: 75 MILLIGRAM;
     Route: 048
     Dates: start: 20100208
  4. FLOMAX [Concomitant]
     Indication: BLADDER DISORDER
     Dosage: .4 MILLIGRAM;
     Dates: start: 20090101

REACTIONS (1)
  - PERIPHERAL COLDNESS [None]
